FAERS Safety Report 24988404 (Version 1)
Quarter: 2025Q1

REPORT INFORMATION
  Report Type: Spontaneous
  Country: IT (occurrence: IT)
  Receive Date: 20250220
  Receipt Date: 20250220
  Transmission Date: 20250408
  Serious: Yes (Death, Other)
  Sender: AMGEN
  Company Number: IT-AMGEN-ITASP2021087066

PATIENT
  Age: 49 Year
  Sex: Female

DRUGS (7)
  1. XGEVA [Suspect]
     Active Substance: DENOSUMAB
     Indication: Breast cancer
     Route: 058
     Dates: start: 20180409, end: 20210209
  2. AVASTIN [Suspect]
     Active Substance: BEVACIZUMAB
     Indication: Breast cancer metastatic
     Route: 042
     Dates: start: 20200706, end: 20210201
  3. DEXAMETHASONE [Concomitant]
     Active Substance: DEXAMETHASONE
  4. ALPELISIB [Concomitant]
     Active Substance: ALPELISIB
     Indication: Breast cancer
     Route: 048
     Dates: start: 20200301, end: 20200601
  5. PALBOCICLIB [Concomitant]
     Active Substance: PALBOCICLIB
     Indication: Breast cancer
     Route: 048
     Dates: start: 20180301, end: 20191001
  6. TAXOL [Concomitant]
     Active Substance: PACLITAXEL
     Indication: Breast cancer
     Route: 042
     Dates: start: 20200706, end: 20201206
  7. PREDNISONE [Concomitant]
     Active Substance: PREDNISONE
     Route: 048

REACTIONS (2)
  - Death [Fatal]
  - Osteonecrosis of jaw [Not Recovered/Not Resolved]

NARRATIVE: CASE EVENT DATE: 20210201
